FAERS Safety Report 8558268 (Version 2)
Quarter: 2014Q2

REPORT INFORMATION
  Report Type: Spontaneous
  Country: US (occurrence: US)
  Receive Date: 20120511
  Receipt Date: 20140508
  Transmission Date: 20141212
  Serious: No
  Sender: FDA-Public Use
  Company Number: US-GLAXOSMITHKLINE-A0953220A

PATIENT
  Age: 57 Year
  Sex: Female
  Weight: 46.4 kg

DRUGS (11)
  1. TYKERB [Suspect]
     Indication: BREAST CANCER
     Dosage: 1250MG PER DAY
     Route: 048
  2. LEVETIRACETAM [Concomitant]
  3. FEMARA [Concomitant]
  4. ZOMETA [Concomitant]
  5. METOCLOPRAMID [Concomitant]
  6. LEVOTHYROXINE [Concomitant]
  7. VITAMIN D [Concomitant]
  8. CALCIUM + D [Concomitant]
  9. ASPIRIN [Concomitant]
  10. DEXAMETHASONE [Concomitant]
  11. HERCEPTIN [Concomitant]

REACTIONS (2)
  - Diarrhoea [Not Recovered/Not Resolved]
  - Alopecia [Unknown]
